FAERS Safety Report 5442687-0 (Version None)
Quarter: 2007Q3

REPORT INFORMATION
  Report Type: 
  Country: None (occurrence: None)
  Receive Date: 20070904
  Receipt Date: 20070828
  Transmission Date: 20080115
  Serious: Yes (Death, Hospitalization, Other)
  Sender: FDA-Public Use
  Company Number: JP-ROXANE LABORATORIES, INC-2007-BP-20000RO

PATIENT
  Age: 71 Year
  Sex: Male

DRUGS (8)
  1. METHOTREXATE [Suspect]
     Indication: RHEUMATOID ARTHRITIS
     Route: 048
     Dates: start: 20000201
  2. CYCLOPHOSPHAMIDE [Concomitant]
     Indication: LYMPHOMA
     Dates: start: 20020803
  3. DOXORUBICIN [Concomitant]
     Indication: LYMPHOMA
     Dates: start: 20020803
  4. VINCRISTINE [Concomitant]
     Indication: LYMPHOMA
     Dates: start: 20020803
  5. METHYLPREDNISOLONE [Concomitant]
     Route: 042
  6. PANIPENEM/BETAMIPRON [Concomitant]
     Indication: EVIDENCE BASED TREATMENT
  7. FLUCONAZOLE [Concomitant]
     Indication: EVIDENCE BASED TREATMENT
  8. SULFAMETHOXAZOLE + TRIMETHOPRIM [Concomitant]
     Indication: EVIDENCE BASED TREATMENT

REACTIONS (5)
  - ANGIOCENTRIC LYMPHOMA [None]
  - AXILLARY MASS [None]
  - DIFFUSE ALVEOLAR DAMAGE [None]
  - INTERSTITIAL LUNG DISEASE [None]
  - LYMPHOPROLIFERATIVE DISORDER [None]
